FAERS Safety Report 5199676-3 (Version None)
Quarter: 2007Q1

REPORT INFORMATION
  Report Type: 
  Country: None (occurrence: None)
  Receive Date: 20070105
  Receipt Date: 20061226
  Transmission Date: 20070707
  Serious: Yes (Death)
  Sender: FDA-Public Use
  Company Number: US-AMGEN-STX201966

PATIENT
  Sex: Male
  Weight: 63.6 kg

DRUGS (2)
  1. ENBREL [Suspect]
     Indication: RHEUMATOID ARTHRITIS
     Route: 058
     Dates: start: 19991101
  2. CELEBREX [Concomitant]
     Dates: start: 20000101

REACTIONS (1)
  - PROSTATE CANCER [None]
